FAERS Safety Report 9307843 (Version 4)
Quarter: 2013Q3

REPORT INFORMATION
  Report Type: Spontaneous
  Country: JP (occurrence: JP)
  Receive Date: 20130524
  Receipt Date: 20130812
  Transmission Date: 20140515
  Serious: Yes (Life-Threatening, Hospitalization)
  Sender: FDA-Public Use
  Company Number: JP-ELI_LILLY_AND_COMPANY-JP201305004383

PATIENT
  Age: 35 Year
  Sex: Male

DRUGS (6)
  1. ZYPREXA [Suspect]
     Indication: SCHIZOPHRENIA
     Dosage: 2.5 MG, QD
     Route: 048
  2. ZYPREXA [Suspect]
     Dosage: 2.5 MG, QD
     Route: 048
  3. ZYPREXA [Suspect]
     Dosage: 5 MG, QD
     Route: 048
  4. RISPERIDONE [Concomitant]
     Indication: SCHIZOPHRENIA
     Dosage: 2 MG, QD
     Route: 048
  5. DIAZEPAM [Concomitant]
     Dosage: UNK
  6. BROTIZOLAM [Concomitant]

REACTIONS (5)
  - Respiratory depression [Recovering/Resolving]
  - Tetanus [Recovering/Resolving]
  - Dysphagia [Recovering/Resolving]
  - Pneumonia aspiration [Unknown]
  - Pyrexia [Unknown]
